FAERS Safety Report 5410294-1 (Version None)
Quarter: 2007Q3

REPORT INFORMATION
  Report Type: 
  Country: None (occurrence: None)
  Receive Date: 20070808
  Receipt Date: 20070802
  Transmission Date: 20080115
  Serious: No
  Sender: FDA-Public Use
  Company Number: TAP2007Q01028

PATIENT
  Age: 46 Year
  Sex: Female
  Weight: 68.5 kg

DRUGS (1)
  1. PREVACID [Suspect]
     Indication: GASTROOESOPHAGEAL REFLUX DISEASE
     Dosage: 30 MG, 1 IN 1 D, ORAL
     Route: 048
     Dates: start: 20060501, end: 20070720

REACTIONS (13)
  - ABDOMINAL DISTENSION [None]
  - ALOPECIA [None]
  - CHEST PAIN [None]
  - DIARRHOEA [None]
  - DIZZINESS [None]
  - HEADACHE [None]
  - INSOMNIA [None]
  - NAUSEA [None]
  - NECK PAIN [None]
  - PIGMENTATION DISORDER [None]
  - POLLAKIURIA [None]
  - RESTLESS LEGS SYNDROME [None]
  - VISION BLURRED [None]
